FAERS Safety Report 10160004 (Version 1)
Quarter: 2014Q2

REPORT INFORMATION
  Report Type: Spontaneous
  Country: US (occurrence: US)
  Receive Date: 20140508
  Receipt Date: 20140508
  Transmission Date: 20141212
  Serious: No
  Sender: FDA-Public Use
  Company Number: US-GLAXOSMITHKLINE-A1054350A

PATIENT
  Age: 64 Year
  Sex: Female

DRUGS (1)
  1. TYKERB [Suspect]
     Indication: COLON CANCER
     Dosage: 500MG PER DAY
     Route: 048
     Dates: start: 20131010, end: 20131211

REACTIONS (4)
  - Diarrhoea [Unknown]
  - Dehydration [Recovered/Resolved]
  - Weight decreased [Unknown]
  - Fluid replacement [Unknown]
